FAERS Safety Report 6004761-X (Version None)
Quarter: 2008Q4

REPORT INFORMATION
  Report Type: 
  Country: None (occurrence: None)
  Receive Date: 20081216
  Receipt Date: 20081204
  Transmission Date: 20090506
  Serious: Yes (Other)
  Sender: FDA-Public Use
  Company Number: US-PFIZER INC-2008055050

PATIENT
  Sex: Female
  Weight: 65.76 kg

DRUGS (8)
  1. LYRICA [Suspect]
     Indication: FIBROMYALGIA
     Dosage: 50 MG, 2X/DAY
     Dates: start: 20080701
  2. LYRICA [Suspect]
     Indication: POLYNEUROPATHY
  3. CALCIUM [Concomitant]
  4. VITAMINS [Concomitant]
  5. GLUCOSAMINE [Concomitant]
  6. ANASTROZOLE [Concomitant]
  7. ASPIRIN [Concomitant]
  8. CYMBALTA [Concomitant]
     Dosage: UNK

REACTIONS (1)
  - MUSCLE ATROPHY [None]
